FAERS Safety Report 20432184 (Version 1)
Quarter: 2022Q1

REPORT INFORMATION
  Report Type: Spontaneous
  Country: US (occurrence: US)
  Receive Date: 20220204
  Receipt Date: 20220204
  Transmission Date: 20220424
  Serious: Yes (Hospitalization)
  Sender: FDA-Public Use
  Company Number: US-ELI_LILLY_AND_COMPANY-US202201011069

PATIENT
  Age: 53 Year
  Sex: Male

DRUGS (5)
  1. BASAGLAR [Suspect]
     Active Substance: INSULIN GLARGINE
     Indication: Type 2 diabetes mellitus
     Dosage: 45 U, EACH MORNING
     Route: 058
     Dates: start: 202105
  2. BASAGLAR [Suspect]
     Active Substance: INSULIN GLARGINE
     Dosage: 25 U, EACH EVENING
     Route: 058
     Dates: start: 202105
  3. DEXAMYCIN [DEXAMETHASONE;TOBRAMYCIN] [Concomitant]
     Indication: Localised infection
     Dosage: UNK, UNKNOWN
     Route: 065
  4. METFORMIN [Concomitant]
     Active Substance: METFORMIN HYDROCHLORIDE
     Indication: Type 2 diabetes mellitus
     Dosage: 1 MG, UNKNOWN
     Route: 065
  5. CEFEPIME [Concomitant]
     Active Substance: CEFEPIME HYDROCHLORIDE
     Indication: Localised infection
     Dosage: UNK, UNKNOWN
     Route: 065

REACTIONS (2)
  - Localised infection [Recovering/Resolving]
  - Weight bearing difficulty [Unknown]

NARRATIVE: CASE EVENT DATE: 20211001
